FAERS Safety Report 18187960 (Version 3)
Quarter: 2020Q4

REPORT INFORMATION
  Report Type: Spontaneous
  Country: US (occurrence: US)
  Receive Date: 20200824
  Receipt Date: 20201002
  Transmission Date: 20210113
  Serious: Yes (Death, Life-Threatening, Hospitalization, Other)
  Sender: FDA-Public Use
  Company Number: US-CATALYST PHARMACEUTICALS, INC-2020CAT00446

PATIENT
  Age: 71 Year
  Sex: Male
  Weight: 66.67 kg

DRUGS (4)
  1. FLECAINIDE [Concomitant]
     Active Substance: FLECAINIDE
     Dosage: 150 MG, 2X/DAY
  2. FIRDAPSE [Suspect]
     Active Substance: AMIFAMPRIDINE PHOSPHATE
     Indication: MYASTHENIC SYNDROME
     Dosage: 15 MG, 3X/DAY
     Route: 048
     Dates: start: 20200129
  3. METFORMIN [Concomitant]
     Active Substance: METFORMIN HYDROCHLORIDE
     Dosage: 500 MG, 2X/DAY
  4. PREDNISONE. [Concomitant]
     Active Substance: PREDNISONE
     Dosage: 20 MG, 1X/DAY

REACTIONS (9)
  - Cardio-respiratory arrest [Recovered/Resolved]
  - Respiratory failure [Unknown]
  - Pneumonia aspiration [Unknown]
  - Small cell lung cancer recurrent [Fatal]
  - Malnutrition [Unknown]
  - Impaired self-care [Recovering/Resolving]
  - Atrial fibrillation [Unknown]
  - Cardiac arrest [Recovered/Resolved]
  - Asthenia [Recovering/Resolving]

NARRATIVE: CASE EVENT DATE: 2020
